FAERS Safety Report 4724328-0 (Version None)
Quarter: 2005Q3

REPORT INFORMATION
  Report Type: 
  Country: None (occurrence: None)
  Receive Date: 20050722
  Receipt Date: 20050708
  Transmission Date: 20060218
  Serious: Yes (Hospitalization)
  Sender: FDA-Public Use
  Company Number: 2005-01268

PATIENT
  Age: 71 Year
  Sex: Male
  Weight: 75 kg

DRUGS (12)
  1. VELCADE [Suspect]
     Indication: MULTIPLE MYELOMA
     Dosage: SEE IMAGE
     Route: 042
     Dates: start: 20050125, end: 20050331
  2. VELCADE [Suspect]
     Indication: MULTIPLE MYELOMA
     Dosage: SEE IMAGE
     Route: 042
     Dates: start: 20050331, end: 20050421
  3. PREDNISONE [Suspect]
     Indication: MULTIPLE MYELOMA
  4. MORPHINE [Concomitant]
  5. RANITIDINE [Concomitant]
  6. SEVREDOL (MORPHINE SULFATE) TABLET [Concomitant]
  7. NEURONTIN [Concomitant]
  8. DIPYRONE TAB [Concomitant]
  9. ANDROCUR (CYPROTERONE ACETATE) [Concomitant]
  10. NEORECORMON (EPOETIN BETA) [Concomitant]
  11. ACYCLOVIR [Concomitant]
  12. PROFACT - SLOW RELEASE (BUSERELIN ACETATE) [Concomitant]

REACTIONS (7)
  - CARPAL TUNNEL SYNDROME [None]
  - HERPES ZOSTER [None]
  - INTERVERTEBRAL DISC DEGENERATION [None]
  - MOBILITY DECREASED [None]
  - MONOPARESIS [None]
  - PAIN IN EXTREMITY [None]
  - SWELLING [None]
